FAERS Safety Report 17929719 (Version 1)
Quarter: 2020Q2

REPORT INFORMATION
  Report Type: Spontaneous
  Country: US (occurrence: US)
  Receive Date: 20200623
  Receipt Date: 20200623
  Transmission Date: 20200714
  Serious: Yes (Death)
  Sender: FDA-Public Use
  Company Number: None

PATIENT
  Age: 85 Year
  Sex: Female

DRUGS (16)
  1. ISOSORBIDE MONONITRATE. [Concomitant]
     Active Substance: ISOSORBIDE MONONITRATE
  2. OMEPRAZOLE. [Concomitant]
     Active Substance: OMEPRAZOLE
  3. ASPIRIN. [Concomitant]
     Active Substance: ASPIRIN
  4. CALCITRIOL. [Concomitant]
     Active Substance: CALCITRIOL
  5. CARVEDILOL. [Concomitant]
     Active Substance: CARVEDILOL
  6. PRED FORTE [Concomitant]
     Active Substance: PREDNISOLONE ACETATE
  7. VITAMIN D2 [Concomitant]
     Active Substance: ERGOCALCIFEROL
  8. NORCO [Concomitant]
     Active Substance: ACETAMINOPHEN\HYDROCODONE BITARTRATE
  9. PAXIL [Concomitant]
     Active Substance: PAROXETINE HYDROCHLORIDE
  10. RAYALDEE [Suspect]
     Active Substance: CALCIFEDIOL
     Indication: HYPERPARATHYROIDISM
     Dosage: ?          OTHER FREQUENCY:TK ONE C PO QPM;?
     Route: 048
     Dates: start: 20181202
  11. AMLODIPINE BESYLATE. [Concomitant]
     Active Substance: AMLODIPINE BESYLATE
  12. CLOPIDOGREL [Concomitant]
     Active Substance: CLOPIDOGREL BISULFATE
  13. RANEXA [Concomitant]
     Active Substance: RANOLAZINE
  14. TORSEMIDE. [Concomitant]
     Active Substance: TORSEMIDE
  15. GLIPIZIDE. [Concomitant]
     Active Substance: GLIPIZIDE
  16. NITROSTAT [Concomitant]
     Active Substance: NITROGLYCERIN

REACTIONS (1)
  - Death [None]

NARRATIVE: CASE EVENT DATE: 20200612
